FAERS Safety Report 11810345 (Version 1)
Quarter: 2015Q4

REPORT INFORMATION
  Report Type: Spontaneous
  Country: US (occurrence: None)
  Receive Date: 20151207
  Receipt Date: 20151207
  Transmission Date: 20160305
  Serious: Yes (Life-Threatening, Hospitalization, Other)
  Sender: FDA-Public Use
  Company Number: None

PATIENT
  Age: 8 Year
  Sex: Male
  Weight: 24.95 kg

DRUGS (1)
  1. LAMICTAL [Suspect]
     Active Substance: LAMOTRIGINE
     Indication: SEIZURE
     Dosage: 2 PILLS
     Route: 048
     Dates: start: 20140301, end: 20150530

REACTIONS (10)
  - Abnormal behaviour [None]
  - Aggression [None]
  - Impulsive behaviour [None]
  - Fall [None]
  - Educational problem [None]
  - Malaise [None]
  - Insomnia [None]
  - Irritability [None]
  - Drug ineffective [None]
  - Agitation [None]

NARRATIVE: CASE EVENT DATE: 20150311
